FAERS Safety Report 20059650 (Version 1)
Quarter: 2021Q4

REPORT INFORMATION
  Report Type: Spontaneous
  Country: US (occurrence: US)
  Receive Date: 20211111
  Receipt Date: 20211111
  Transmission Date: 20220303
  Serious: Yes (Hospitalization, Other)
  Sender: FDA-Public Use
  Company Number: US-009507513-2111USA003028

PATIENT
  Sex: Female

DRUGS (5)
  1. JANUVIA [Suspect]
     Active Substance: SITAGLIPTIN PHOSPHATE
     Indication: Diabetes mellitus
     Dosage: 1 TABLET ONCE DAILY
     Route: 048
     Dates: start: 201911
  2. JANUVIA [Suspect]
     Active Substance: SITAGLIPTIN PHOSPHATE
     Dosage: 100 MILLIGRAM
  3. NORVASC [Suspect]
     Active Substance: AMLODIPINE BESYLATE
     Indication: Diabetes mellitus
  4. TYLENOL [Concomitant]
     Active Substance: ACETAMINOPHEN
  5. ASPIRIN [Concomitant]
     Active Substance: ASPIRIN

REACTIONS (3)
  - Cerebrovascular accident [Recovering/Resolving]
  - Blood glucose increased [Recovering/Resolving]
  - White blood cell count increased [Recovering/Resolving]

NARRATIVE: CASE EVENT DATE: 20210101
